FAERS Safety Report 5751344-2 (Version None)
Quarter: 2008Q2

REPORT INFORMATION
  Report Type: 
  Country: None (occurrence: None)
  Receive Date: 20080528
  Receipt Date: 20080520
  Transmission Date: 20081010
  Serious: Yes (Other)
  Sender: FDA-Public Use
  Company Number: US-PFIZER INC-2008043237

PATIENT
  Sex: Female
  Weight: 90.7 kg

DRUGS (8)
  1. ZOLOFT [Suspect]
     Indication: DEPRESSION
  2. LANTUS [Concomitant]
  3. INSULIN GLULISINE [Concomitant]
  4. XANAX [Concomitant]
  5. CRESTOR [Concomitant]
  6. TRAZODONE HCL [Concomitant]
  7. ALL OTHER THERAPEUTIC PRODUCTS [Concomitant]
  8. TYLENOL PM [Concomitant]

REACTIONS (3)
  - DEPENDENCE [None]
  - DEPRESSION [None]
  - DRUG INEFFECTIVE [None]
